FAERS Safety Report 10243225 (Version 1)
Quarter: 2014Q2

REPORT INFORMATION
  Report Type: Spontaneous
  Country: IT (occurrence: IT)
  Receive Date: 20140618
  Receipt Date: 20140618
  Transmission Date: 20141212
  Serious: Yes (Hospitalization)
  Sender: FDA-Public Use
  Company Number: IT-JNJFOC-20140605798

PATIENT
  Age: 87 Year
  Sex: Male

DRUGS (3)
  1. RISPERDAL [Suspect]
     Indication: DEMENTIA ALZHEIMER^S TYPE
     Route: 048
     Dates: start: 20140101, end: 20140526
  2. MINIAS [Suspect]
     Indication: INSOMNIA
     Route: 048
     Dates: start: 20140525, end: 20140525
  3. MINIAS [Suspect]
     Indication: INSOMNIA
     Route: 048

REACTIONS (2)
  - Psychomotor skills impaired [Recovering/Resolving]
  - Off label use [Unknown]
